FAERS Safety Report 8862494 (Version 1)
Quarter: 2012Q4

REPORT INFORMATION
  Report Type: 
  Country: US (occurrence: US)
  Receive Date: 20121026
  Receipt Date: 20121026
  Transmission Date: 20130627
  Serious: No
  Sender: FDA-Public Use
  Company Number: US-ALLERGAN-1213672US

PATIENT
  Sex: Male

DRUGS (1)
  1. ALPHAGAN [Suspect]
     Indication: DRUG USE FOR UNKNOWN INDICATION
     Route: 047

REACTIONS (1)
  - Eye irritation [Recovered/Resolved]
